FAERS Safety Report 7754837-1 (Version None)
Quarter: 2011Q3

REPORT INFORMATION
  Report Type: 
  Country: None (occurrence: None)
  Receive Date: 20110916
  Receipt Date: 20110909
  Transmission Date: 20111222
  Serious: No
  Sender: FDA-Public Use
  Company Number: US-BIOGENIDEC-2011BI021119

PATIENT
  Sex: Male

DRUGS (3)
  1. TYSABRI [Suspect]
     Indication: MULTIPLE SCLEROSIS
     Route: 042
     Dates: start: 20100318
  2. TYSABRI [Suspect]
     Route: 042
     Dates: start: 20090612, end: 20090612
  3. AVONEX [Concomitant]
     Indication: MULTIPLE SCLEROSIS
     Route: 030
     Dates: start: 19981201

REACTIONS (4)
  - ALOPECIA [None]
  - MULTIPLE SCLEROSIS [None]
  - VISUAL ACUITY REDUCED [None]
  - DYSGRAPHIA [None]
